FAERS Safety Report 18366250 (Version 1)
Quarter: 2020Q4

REPORT INFORMATION
  Report Type: Spontaneous
  Country: CN (occurrence: CN)
  Receive Date: 20201009
  Receipt Date: 20201009
  Transmission Date: 20210114
  Serious: Yes (Hospitalization, Other)
  Sender: FDA-Public Use
  Company Number: CN-ASTRAZENECA-2020SF28570

PATIENT
  Age: 66 Year
  Sex: Female
  Weight: 58 kg

DRUGS (2)
  1. ASPIRIN. [Suspect]
     Active Substance: ASPIRIN
     Indication: CORONARY ARTERY DISEASE
     Route: 048
     Dates: start: 20200812, end: 20200911
  2. TICAGRELOR. [Suspect]
     Active Substance: TICAGRELOR
     Indication: CORONARY ARTERY DISEASE
     Route: 048
     Dates: start: 20200812, end: 20200911

REACTIONS (9)
  - Epigastric discomfort [Unknown]
  - Melaena [Unknown]
  - Dizziness [Unknown]
  - Chronic gastritis [Unknown]
  - Palpitations [Unknown]
  - Syncope [Unknown]
  - Haematochezia [Recovered/Resolved]
  - Gastric polyps [Unknown]
  - Hyperhidrosis [Unknown]

NARRATIVE: CASE EVENT DATE: 20200909
